FAERS Safety Report 6149483-X (Version None)
Quarter: 2009Q2

REPORT INFORMATION
  Report Type: 
  Country: None (occurrence: None)
  Receive Date: 20090409
  Receipt Date: 20090331
  Transmission Date: 20091009
  Serious: Yes (Death)
  Sender: FDA-Public Use
  Company Number: IN-ROCHE-624477

PATIENT
  Sex: Male

DRUGS (6)
  1. PEGASYS [Suspect]
     Indication: HEPATITIS B
     Route: 058
     Dates: start: 20090317, end: 20090325
  2. ADEFOVIR DIPIVOXIL KIT [Concomitant]
     Indication: HEPATITIS B POSITIVE
     Dosage: INDICATION: CHRONIC LIVER DISEASE
     Route: 048
  3. LACTULOSE [Concomitant]
  4. RIFAMICINA [Concomitant]
     Dosage: DRUG REPORTED AS RIFAMICIN
  5. URSODIOL [Concomitant]
  6. RABEPRAZOLE SODIUM [Concomitant]

REACTIONS (2)
  - COMA HEPATIC [None]
  - ENCEPHALOPATHY [None]
